FAERS Safety Report 8502922-9 (Version None)
Quarter: 2012Q3

REPORT INFORMATION
  Report Type: 
  Country: None (occurrence: None)
  Receive Date: 20120711
  Receipt Date: 20120706
  Transmission Date: 20120928
  Serious: Yes (Other)
  Sender: FDA-Public Use
  Company Number: US-PFIZER INC-2012162747

PATIENT
  Sex: Female
  Weight: 100 kg

DRUGS (6)
  1. TRAMADOL HCL [Suspect]
     Indication: EHLERS-DANLOS SYNDROME
     Dosage: UNK
  2. CODEINE [Suspect]
     Indication: EHLERS-DANLOS SYNDROME
     Dosage: UNK
  3. NEURONTIN [Suspect]
     Indication: EHLERS-DANLOS SYNDROME
     Dosage: 300 MG,DAILY
     Dates: start: 20120601
  4. CYCLOBENZAPRINE [Concomitant]
     Indication: MUSCLE SPASTICITY
     Dosage: 1-2MG, 1X/DAY
  5. IBUPROFEN [Suspect]
     Indication: EHLERS-DANLOS SYNDROME
     Dosage: UNK
  6. VICODIN [Suspect]
     Indication: EHLERS-DANLOS SYNDROME
     Dosage: UNK

REACTIONS (11)
  - PSYCHOMOTOR HYPERACTIVITY [None]
  - CLUMSINESS [None]
  - BALANCE DISORDER [None]
  - GASTRIC ULCER [None]
  - HYPERSENSITIVITY [None]
  - DIZZINESS [None]
  - FEELING ABNORMAL [None]
  - ABDOMINAL DISTENSION [None]
  - MANIA [None]
  - ALOPECIA [None]
  - INSOMNIA [None]
